FAERS Safety Report 11722360 (Version 1)
Quarter: 2015Q4

REPORT INFORMATION
  Report Type: Spontaneous
  Country: US (occurrence: US)
  Receive Date: 20151111
  Receipt Date: 20151111
  Transmission Date: 20160304
  Serious: No
  Sender: FDA-Public Use
  Company Number: PHEH2015US022362

PATIENT
  Age: 81 Year
  Sex: Female

DRUGS (1)
  1. ZYKADIA [Suspect]
     Active Substance: CERITINIB
     Indication: NON-SMALL CELL LUNG CANCER METASTATIC
     Dosage: 750 MG, QD
     Route: 048

REACTIONS (3)
  - Diarrhoea [Unknown]
  - Gastrointestinal toxicity [Unknown]
  - Nausea [Unknown]
